FAERS Safety Report 4888332-4 (Version None)
Quarter: 2006Q1

REPORT INFORMATION
  Report Type: 
  Country: None (occurrence: None)
  Receive Date: 20060123
  Receipt Date: 20060118
  Transmission Date: 20060701
  Serious: Yes (Other)
  Sender: FDA-Public Use
  Company Number: FR-GLAXOSMITHKLINE-B0407221A

PATIENT
  Age: 50 Year
  Sex: Male
  Weight: 80 kg

DRUGS (1)
  1. CLAMOXYL [Suspect]
     Indication: GASTROENTERITIS
     Dosage: 1G THREE TIMES PER DAY
     Route: 048
     Dates: start: 20060116, end: 20060118

REACTIONS (3)
  - ANAEMIA [None]
  - FATIGUE [None]
  - LEUKOPENIA [None]
